FAERS Safety Report 9279215 (Version 1)
Quarter: 2013Q2

REPORT INFORMATION
  Report Type: Spontaneous
  Country: IT (occurrence: None)
  Receive Date: 20130501
  Receipt Date: 20130501
  Transmission Date: 20140414
  Serious: Yes (Hospitalization)
  Sender: FDA-Public Use
  Company Number: AUR-APL-2013-03339

PATIENT
  Age: 39 Year
  Sex: Male

DRUGS (1)
  1. AMOXICILLIN (AMOXICILLIN) [Suspect]
     Indication: PRODUCT USED FOR UNKNOWN INDICATION
     Dosage: TOTAL
     Route: 048
     Dates: start: 20130207, end: 20130207

REACTIONS (4)
  - Anaphylactic reaction [None]
  - Cyanosis [None]
  - Dyspnoea [None]
  - Erythema [None]
